FAERS Safety Report 10911798 (Version 1)
Quarter: 2015Q1

REPORT INFORMATION
  Report Type: Spontaneous
  Country: US (occurrence: None)
  Receive Date: 20150309
  Receipt Date: 20150309
  Transmission Date: 20150721
  Serious: Yes (Other)
  Sender: FDA-Public Use
  Company Number: ADR-2015-00223

PATIENT
  Age: 38 Year
  Sex: Female

DRUGS (3)
  1. ANETHESIA DRUG NOT SPECIFIED [Suspect]
     Active Substance: UNSPECIFIED INGREDIENT
     Indication: MUSCLE SPASTICITY
  2. LIORESAL [Suspect]
     Active Substance: BACLOFEN
     Indication: MUSCLE SPASTICITY
  3. GABAPENTIN. [Suspect]
     Active Substance: GABAPENTIN
     Route: 048

REACTIONS (5)
  - Implant site extravasation [None]
  - Sedation [None]
  - Therapeutic response changed [None]
  - Delayed recovery from anaesthesia [None]
  - Cerebrospinal fluid leakage [None]

NARRATIVE: CASE EVENT DATE: 20150126
